FAERS Safety Report 16053400 (Version 1)
Quarter: 2019Q1

REPORT INFORMATION
  Report Type: Report from Study
  Country: GT (occurrence: GT)
  Receive Date: 20190308
  Receipt Date: 20190308
  Transmission Date: 20190418
  Serious: Yes (Death, Other)
  Sender: FDA-Public Use
  Company Number: PHHY2019GT052516

PATIENT
  Age: 90 Year
  Sex: Female

DRUGS (1)
  1. VYMADA [Suspect]
     Active Substance: SACUBITRIL\VALSARTAN
     Indication: CARDIAC DISORDER
     Dosage: UNK (SINCE 7 YEARS)
     Route: 065

REACTIONS (5)
  - Abdominal pain [Unknown]
  - Pain in extremity [Unknown]
  - Death [Fatal]
  - Product use in unapproved indication [Unknown]
  - Renal failure [Unknown]

NARRATIVE: CASE EVENT DATE: 20190206
